FAERS Safety Report 24707952 (Version 2)
Quarter: 2024Q4

REPORT INFORMATION
  Report Type: Spontaneous
  Country: TN (occurrence: TN)
  Receive Date: 20241206
  Receipt Date: 20241218
  Transmission Date: 20250114
  Serious: Yes (Other)
  Sender: ALNYLAM PHARMACEUTICALS
  Company Number: TN-ALNYLAM PHARMACEUTICALS, INC.-ALN-2024-006645

PATIENT

DRUGS (2)
  1. OXLUMO [Suspect]
     Active Substance: LUMASIRAN
     Indication: Product used for unknown indication
     Dosage: 1 MILLILITER
     Route: 058
     Dates: start: 20240504, end: 20240504
  2. OXLUMO [Suspect]
     Active Substance: LUMASIRAN
     Dosage: 1 MILLILITER
     Route: 058
     Dates: start: 20240801, end: 20240801

REACTIONS (1)
  - Incorrect dose administered [Unknown]

NARRATIVE: CASE EVENT DATE: 20240101
